FAERS Safety Report 19332607 (Version 1)
Quarter: 2021Q2

REPORT INFORMATION
  Report Type: Spontaneous
  Country: US (occurrence: US)
  Receive Date: 20210529
  Receipt Date: 20210529
  Transmission Date: 20210717
  Serious: Yes (Other)
  Sender: FDA-Public Use
  Company Number: US-AMGEN-USASP2021080393

PATIENT
  Sex: Female

DRUGS (1)
  1. CORLANOR [Suspect]
     Active Substance: IVABRADINE HYDROCHLORIDE
     Indication: TACHYCARDIA
     Dosage: 5 MILLIGRAM
     Route: 065

REACTIONS (7)
  - Atrial fibrillation [Unknown]
  - Heart rate increased [Unknown]
  - Dyspnoea [Unknown]
  - Cardiac monitoring [Unknown]
  - Off label use [Unknown]
  - Drug effective for unapproved indication [Unknown]
  - Dizziness [Unknown]
